FAERS Safety Report 5133893-3 (Version None)
Quarter: 2006Q4

REPORT INFORMATION
  Report Type: 
  Country: None (occurrence: None)
  Receive Date: 20061019
  Receipt Date: 20061010
  Transmission Date: 20070319
  Serious: Yes (Life-Threatening, Hospitalization)
  Sender: FDA-Public Use
  Company Number: 14961

PATIENT
  Age: 61 Year
  Sex: Female
  Weight: 75 kg

DRUGS (3)
  1. METHYLENE BLUE [Suspect]
     Dosage: 7.5 MG FREQ UNK IV
     Route: 042
     Dates: start: 20060920
  2. ANASTROZOLE [Concomitant]
  3. CLOMIPRAMINE HCL [Concomitant]

REACTIONS (4)
  - CEREBRAL DISORDER [None]
  - COMA [None]
  - CONVULSION [None]
  - SEROTONIN SYNDROME [None]
